FAERS Safety Report 4279307-7 (Version None)
Quarter: 2004Q1

REPORT INFORMATION
  Report Type: 
  Country: None (occurrence: None)
  Receive Date: 20040127
  Receipt Date: 20031205
  Transmission Date: 20041129
  Serious: Yes (Other)
  Sender: FDA-Public Use
  Company Number: NZ-ROCHE-353352

PATIENT
  Age: 49 Year
  Sex: Female
  Weight: 47 kg

DRUGS (6)
  1. PEGASYS [Suspect]
     Indication: HEPATITIS C
     Dosage: FORMULATION = PRE-FILLED SYRINGE (PFS).
     Route: 058
  2. PEGASYS [Suspect]
     Dosage: DOSE WAS REDUCED FOR THE THIRD DOSE.
     Route: 058
  3. PEGASYS [Suspect]
     Route: 058
     Dates: start: 20031215
  4. COPEGUS [Suspect]
     Indication: HEPATITIS C
     Route: 048
  5. COPEGUS [Suspect]
     Route: 048
  6. COPEGUS [Suspect]
     Route: 048
     Dates: start: 20031215

REACTIONS (4)
  - CHEST X-RAY ABNORMAL [None]
  - DIZZINESS [None]
  - HAEMOGLOBIN DECREASED [None]
  - WEIGHT DECREASED [None]
